FAERS Safety Report 17441132 (Version 1)
Quarter: 2020Q1

REPORT INFORMATION
  Report Type: Report from Study
  Country: US (occurrence: US)
  Receive Date: 20200220
  Receipt Date: 20200220
  Transmission Date: 20200409
  Serious: Yes (Hospitalization)
  Sender: FDA-Public Use
  Company Number: US-MYLANLABS-2020M1020291

PATIENT
  Sex: Female

DRUGS (6)
  1. PACLITAXEL. [Suspect]
     Active Substance: PACLITAXEL
     Indication: ACTH-PRODUCING PITUITARY TUMOUR
     Dosage: 4 ROUNDS
     Route: 065
  2. OCTREOTIDE. [Suspect]
     Active Substance: OCTREOTIDE
     Indication: PITUITARY TUMOUR BENIGN
  3. PACLITAXEL. [Suspect]
     Active Substance: PACLITAXEL
     Indication: PITUITARY TUMOUR BENIGN
  4. CISPLATIN. [Suspect]
     Active Substance: CISPLATIN
     Indication: PITUITARY TUMOUR BENIGN
  5. OCTREOTIDE. [Suspect]
     Active Substance: OCTREOTIDE
     Indication: ACTH-PRODUCING PITUITARY TUMOUR
     Dosage: UNK
     Route: 065
  6. CISPLATIN. [Suspect]
     Active Substance: CISPLATIN
     Indication: ACTH-PRODUCING PITUITARY TUMOUR
     Dosage: 4 ROUNDS
     Route: 065

REACTIONS (1)
  - Treatment failure [Unknown]
